FAERS Safety Report 5721464-7 (Version None)
Quarter: 2008Q2

REPORT INFORMATION
  Report Type: 
  Country: None (occurrence: None)
  Receive Date: 20080428
  Receipt Date: 20080428
  Transmission Date: 20081010
  Serious: Yes (Other)
  Sender: FDA-Public Use
  Company Number: None

PATIENT
  Age: 23 Year
  Sex: Female
  Weight: 62.1428 kg

DRUGS (4)
  1. DEPO-PROVERA [Suspect]
     Indication: CONTRACEPTION
     Dosage: 150 MG  EVERY 12 WEEKS  IM
     Route: 030
     Dates: start: 20070129, end: 20080225
  2. CLINDAMYCIN [Concomitant]
  3. ROCEPHIN [Concomitant]
  4. DIFLUCAN [Concomitant]

REACTIONS (2)
  - NAUSEA [None]
  - PREGNANCY TEST POSITIVE [None]
